FAERS Safety Report 26197229 (Version 1)
Quarter: 2025Q4

REPORT INFORMATION
  Report Type: Report from Study
  Country: CA (occurrence: CA)
  Receive Date: 20251224
  Receipt Date: 20251224
  Transmission Date: 20260117
  Serious: Yes (Other)
  Sender: SANOFI AVENTIS
  Company Number: CA-SA-2025SA382059

PATIENT
  Sex: Male

DRUGS (7)
  1. DUPILUMAB [Suspect]
     Active Substance: DUPILUMAB
     Indication: Chronic rhinosinusitis with nasal polyps
     Dosage: 300 MG, QOW
     Route: 058
     Dates: start: 20230815, end: 2025
  2. CLARITIN [Concomitant]
     Active Substance: LORATADINE
  3. MONTELUKAST [Concomitant]
     Active Substance: MONTELUKAST
  4. TACROLIMUS [Concomitant]
     Active Substance: TACROLIMUS
  5. MELATONIN [Concomitant]
     Active Substance: MELATONIN
  6. BETADERM [Concomitant]
     Active Substance: BETAMETHASONE VALERATE
  7. ADMELOG [Concomitant]
     Active Substance: INSULIN LISPRO

REACTIONS (2)
  - Type 1 diabetes mellitus [Unknown]
  - Condition aggravated [Unknown]
